FAERS Safety Report 6423808-X (Version None)
Quarter: 2009Q4

REPORT INFORMATION
  Report Type: 
  Country: None (occurrence: None)
  Receive Date: 20091102
  Receipt Date: 20091029
  Transmission Date: 20100525
  Serious: Yes (Life-Threatening, Hospitalization)
  Sender: FDA-Public Use
  Company Number: FR-WYE-G04630709

PATIENT
  Sex: Male

DRUGS (3)
  1. TORISEL [Suspect]
     Indication: RENAL CANCER METASTATIC
     Dosage: 25 MG
     Route: 042
     Dates: start: 20091001, end: 20091001
  2. POLARAMINE [Concomitant]
     Indication: PROPHYLAXIS
     Dosage: 1 AMPULE INFUSED 30 MINUTES BEFORE THE INFUSION OF TORISEL
     Route: 042
     Dates: start: 20091001, end: 20091001
  3. RANITIDINE HCL [Concomitant]
     Indication: PROPHYLAXIS
     Dosage: 1 AMPULE INFUSED 30 MINUTES BEFORE THE INFUSION OF TORISEL
     Route: 042
     Dates: start: 20091001, end: 20091001

REACTIONS (2)
  - ANAPHYLACTIC SHOCK [None]
  - CARDIO-RESPIRATORY ARREST [None]
